FAERS Safety Report 20781006 (Version 2)
Quarter: 2022Q3

REPORT INFORMATION
  Report Type: Spontaneous
  Country: US (occurrence: US)
  Receive Date: 20220504
  Receipt Date: 20220726
  Transmission Date: 20221027
  Serious: No
  Sender: FDA-Public Use
  Company Number: US-BRISTOL-MYERS SQUIBB COMPANY-2022-017542

PATIENT
  Age: 44 Year
  Sex: Male

DRUGS (1)
  1. ORENCIA [Suspect]
     Active Substance: ABATACEPT
     Indication: Rheumatoid arthritis
     Dosage: ONGOING?BATCH NUMBER: BCUL15A, EXPIRY DATE; 30-NOV-2023
     Route: 058
     Dates: start: 20201219

REACTIONS (4)
  - COVID-19 [Unknown]
  - Mental status changes [Unknown]
  - General physical condition abnormal [Unknown]
  - Abdominal pain upper [Unknown]

NARRATIVE: CASE EVENT DATE: 20210101
